FAERS Safety Report 9868765 (Version 2)
Quarter: 2014Q1

REPORT INFORMATION
  Report Type: Spontaneous
  Country: JP (occurrence: JP)
  Receive Date: 20140204
  Receipt Date: 20140305
  Transmission Date: 20141002
  Serious: Yes (Other)
  Sender: FDA-Public Use
  Company Number: JP-JNJFOC-20140200574

PATIENT
  Sex: 0

DRUGS (3)
  1. SOVRIAD [Suspect]
     Indication: CHRONIC HEPATITIS C
     Route: 048
     Dates: start: 20140113, end: 20140220
  2. PEGINTRON [Suspect]
     Indication: CHRONIC HEPATITIS C
     Route: 058
     Dates: start: 20140113, end: 20140220
  3. REBETOL [Suspect]
     Indication: CHRONIC HEPATITIS C
     Route: 048
     Dates: start: 20140113, end: 20140220

REACTIONS (2)
  - Drug eruption [Recovered/Resolved]
  - Injection site erythema [Recovered/Resolved]
